FAERS Safety Report 9290395 (Version 1)
Quarter: 2013Q2

REPORT INFORMATION
  Report Type: Spontaneous
  Country: DE (occurrence: DE)
  Receive Date: 20130515
  Receipt Date: 20130515
  Transmission Date: 20140414
  Serious: Yes (Other)
  Sender: FDA-Public Use
  Company Number: DE-PFIZER INC-2013142430

PATIENT
  Age: 37 Year
  Sex: Female

DRUGS (1)
  1. SAYANA [Suspect]
     Dosage: UNK
     Dates: start: 2011

REACTIONS (2)
  - Injection site necrosis [Unknown]
  - Injection site reaction [Unknown]
